FAERS Safety Report 16224641 (Version 1)
Quarter: 2019Q2

REPORT INFORMATION
  Report Type: Spontaneous
  Country: US (occurrence: US)
  Receive Date: 20190422
  Receipt Date: 20190422
  Transmission Date: 20190711
  Serious: No
  Sender: FDA-Public Use
  Company Number: US-FOUNDATIONCONSUMERHC-2018-US-019243

PATIENT
  Sex: Female

DRUGS (1)
  1. TAKE ACTION [Suspect]
     Active Substance: LEVONORGESTREL
     Indication: PRODUCT USED FOR UNKNOWN INDICATION
     Dosage: 1.5 MG
     Route: 048
     Dates: start: 20180919, end: 20180919

REACTIONS (4)
  - Menorrhagia [Recovered/Resolved]
  - Abdominal pain [Recovered/Resolved]
  - Erythropenia [Unknown]
  - Mucosal discolouration [Unknown]

NARRATIVE: CASE EVENT DATE: 20180919
